APPROVED DRUG PRODUCT: BUPRENORPHINE HYDROCHLORIDE
Active Ingredient: BUPRENORPHINE HYDROCHLORIDE
Strength: EQ 0.3MG BASE/ML
Dosage Form/Route: INJECTABLE;INJECTION
Application: A206586 | Product #001 | TE Code: AP
Applicant: PH HEALTH LTD
Approved: Jul 28, 2015 | RLD: No | RS: Yes | Type: RX